FAERS Safety Report 6355024-4 (Version None)
Quarter: 2009Q3

REPORT INFORMATION
  Report Type: 
  Country: None (occurrence: None)
  Receive Date: 20090914
  Receipt Date: 20090902
  Transmission Date: 20100115
  Serious: Yes (Other)
  Sender: FDA-Public Use
  Company Number: B0591307A

PATIENT
  Age: 39 Year
  Sex: Male

DRUGS (2)
  1. ARIXTRA [Suspect]
     Indication: THROMBOSIS PROPHYLAXIS
     Dosage: 2.5MG PER DAY
     Route: 058
     Dates: start: 20090719, end: 20090730
  2. VENTOLIN [Concomitant]
     Indication: ASTHMA
     Route: 065

REACTIONS (4)
  - ANXIETY [None]
  - CHEST PAIN [None]
  - MALAISE [None]
  - RESPIRATORY DISORDER [None]
